FAERS Safety Report 9070539 (Version 1)
Quarter: 2013Q1

REPORT INFORMATION
  Report Type: Spontaneous
  Country: GR (occurrence: GR)
  Receive Date: 20130215
  Receipt Date: 20130215
  Transmission Date: 20140127
  Serious: Yes (Other)
  Sender: FDA-Public Use
  Company Number: GR-JNJFOC-20130203214

PATIENT
  Sex: Female

DRUGS (2)
  1. INFLIXIMAB, RECOMBINANT [Suspect]
     Indication: EXPOSURE VIA BODY FLUID
     Dosage: THE PATIENT^S HUSBAND RECIEVED DOSE AT 0,2, 6 AND EVERY 8 WEEKS THEREAFTER
     Route: 050
  2. METHOTREXATE [Suspect]
     Indication: EXPOSURE VIA BODY FLUID
     Route: 050

REACTIONS (2)
  - Abortion induced [Recovered/Resolved]
  - Exposure during pregnancy [Recovered/Resolved]
